FAERS Safety Report 8968859 (Version 1)
Quarter: 2012Q4

REPORT INFORMATION
  Report Type: Spontaneous
  Country: JP (occurrence: None)
  Receive Date: 20121207
  Receipt Date: 20121207
  Transmission Date: 20130627
  Serious: Yes (Hospitalization, Other)
  Sender: FDA-Public Use
  Company Number: 2012P1065757

PATIENT
  Age: 4 Year
  Sex: Male

DRUGS (7)
  1. GABAPENTIN [Suspect]
     Indication: WEST^S SYNDROME
  2. GABAPENTIN [Suspect]
     Indication: INTRACTABLE EPILEPSY
  3. PHENYTOIN (NO PREF. NAME) [Suspect]
     Dosage: 2 wk
  4. VALPROATE [Suspect]
  5. CLONAZEPAM [Concomitant]
  6. RISPERIDONE [Concomitant]
  7. ZONISAMIDE [Concomitant]

REACTIONS (3)
  - Toxic epidermal necrolysis [None]
  - Conjunctivitis [None]
  - Leukopenia [None]
